FAERS Safety Report 9078842 (Version 1)
Quarter: 2013Q1

REPORT INFORMATION
  Report Type: Spontaneous
  Country: US (occurrence: US)
  Receive Date: 20130215
  Receipt Date: 20130215
  Transmission Date: 20140127
  Serious: Yes (Death, Other)
  Sender: FDA-Public Use
  Company Number: US-ELI_LILLY_AND_COMPANY-US201302004299

PATIENT
  Age: 75 Year
  Sex: Male

DRUGS (4)
  1. EFFIENT [Suspect]
     Indication: PERCUTANEOUS CORONARY INTERVENTION
     Dosage: LOADING DOSE
     Dates: start: 201101
  2. EFFIENT [Suspect]
     Dosage: 10 MG, MAINTENANCE DOSE
  3. REOPRO [Concomitant]
     Indication: PERCUTANEOUS CORONARY INTERVENTION
     Dosage: UNK
     Dates: start: 20130121
  4. ASPIRIN [Concomitant]

REACTIONS (2)
  - Death [Fatal]
  - Haemorrhage intracranial [Unknown]
